FAERS Safety Report 10336310 (Version 2)
Quarter: 2014Q3

REPORT INFORMATION
  Report Type: Spontaneous
  Country: US (occurrence: US)
  Receive Date: 20140723
  Receipt Date: 20140723
  Transmission Date: 20150326
  Serious: Yes (Other)
  Sender: FDA-Public Use
  Company Number: US-BRISTOL-MYERS SQUIBB COMPANY-20074779

PATIENT
  Age: 55 Year
  Sex: Female
  Weight: 67.12 kg

DRUGS (1)
  1. COUMADIN [Suspect]
     Active Substance: WARFARIN SODIUM
     Indication: AORTIC VALVE REPLACEMENT
     Dosage: 1DF=5MG + 2.5MG; BRAND,START DATE:15NOV2012
     Route: 048
     Dates: start: 20050120

REACTIONS (2)
  - International normalised ratio fluctuation [Unknown]
  - Cerebrovascular accident [Unknown]
